FAERS Safety Report 7149960-9 (Version None)
Quarter: 2010Q4

REPORT INFORMATION
  Report Type: 
  Country: None (occurrence: None)
  Receive Date: 20101210
  Receipt Date: 20101201
  Transmission Date: 20110411
  Serious: No
  Sender: FDA-Public Use
  Company Number: US-BIOGENIDEC-2010BI042749

PATIENT
  Sex: Female

DRUGS (1)
  1. AVONEX [Suspect]
     Indication: MULTIPLE SCLEROSIS
     Route: 030
     Dates: start: 20000110

REACTIONS (5)
  - ABASIA [None]
  - FACIAL BONES FRACTURE [None]
  - FALL [None]
  - MEMORY IMPAIRMENT [None]
  - MUSCULAR WEAKNESS [None]
